FAERS Safety Report 9185606 (Version 3)
Quarter: 2013Q2

REPORT INFORMATION
  Report Type: Spontaneous
  Country: US (occurrence: US)
  Receive Date: 20121031
  Receipt Date: 20130521
  Transmission Date: 20140414
  Serious: Yes (Other)
  Sender: FDA-Public Use
  Company Number: US-UCBSA-069802

PATIENT
  Age: 26 Year
  Sex: Female
  Weight: 59.42 kg

DRUGS (1)
  1. CIMZIA [Suspect]
     Indication: CROHN^S DISEASE
     Route: 058
     Dates: start: 20111201

REACTIONS (3)
  - Oral herpes [Recovered/Resolved]
  - Productive cough [Recovered/Resolved]
  - Swollen tongue [Recovered/Resolved]
